FAERS Safety Report 4966896-X (Version None)
Quarter: 2006Q2

REPORT INFORMATION
  Report Type: 
  Country: None (occurrence: None)
  Receive Date: 20060407
  Receipt Date: 20051202
  Transmission Date: 20061013
  Serious: Yes (Hospitalization, Disabling, Other)
  Sender: FDA-Public Use
  Company Number: US-MERCK-0512USA00504

PATIENT
  Age: 53 Year
  Sex: Male
  Weight: 100 kg

DRUGS (11)
  1. CELEBREX [Suspect]
     Indication: ARTHRITIS
     Route: 065
     Dates: start: 20000511, end: 20020401
  2. VIOXX [Suspect]
     Indication: ARTHRITIS
     Route: 048
     Dates: start: 19990819, end: 20000801
  3. VIOXX [Suspect]
     Route: 048
     Dates: start: 20020716, end: 20020901
  4. VIOXX [Suspect]
     Route: 048
     Dates: start: 20010821
  5. VIOXX [Suspect]
     Route: 048
     Dates: start: 20020204
  6. VIOXX [Suspect]
     Indication: BONE DISORDER
     Route: 048
     Dates: start: 19990819, end: 20000801
  7. VIOXX [Suspect]
     Route: 048
     Dates: start: 20020716, end: 20020901
  8. VIOXX [Suspect]
     Route: 048
     Dates: start: 20010821
  9. VIOXX [Suspect]
     Route: 048
     Dates: start: 20020204
  10. XANAX [Concomitant]
     Route: 065
  11. LORTAB [Concomitant]
     Route: 065

REACTIONS (24)
  - AMAUROSIS FUGAX [None]
  - APPENDICITIS [None]
  - BLINDNESS UNILATERAL [None]
  - CARDIAC FAILURE CONGESTIVE [None]
  - CEREBRAL ATROPHY [None]
  - CEREBROVASCULAR ACCIDENT [None]
  - CHEST PAIN [None]
  - CHOLECYSTITIS INFECTIVE [None]
  - DIPLOPIA [None]
  - FALL [None]
  - GASTRIC ULCER PERFORATION [None]
  - HEADACHE [None]
  - INSOMNIA [None]
  - LACUNAR INFARCTION [None]
  - LIMB INJURY [None]
  - MAJOR DEPRESSION [None]
  - MITRAL VALVE INCOMPETENCE [None]
  - MYOCARDIAL INFARCTION [None]
  - SEASONAL ALLERGY [None]
  - SLEEP APNOEA SYNDROME [None]
  - TRANSIENT ISCHAEMIC ATTACK [None]
  - TRICUSPID VALVE INCOMPETENCE [None]
  - UPPER RESPIRATORY TRACT INFECTION [None]
  - VENTRICULAR HYPERTROPHY [None]
